FAERS Safety Report 5583519-X (Version None)
Quarter: 2008Q1

REPORT INFORMATION
  Report Type: 
  Country: None (occurrence: None)
  Receive Date: 20080107
  Receipt Date: 20071211
  Transmission Date: 20080703
  Serious: No
  Sender: FDA-Public Use
  Company Number: US-BOEHRINGER INGELHEIM PHARMACEUTICALS, INC.-2007-BP-26020BP

PATIENT
  Age: 78 Year
  Sex: Female

DRUGS (2)
  1. ZANTAC 75 [Suspect]
     Indication: DYSPEPSIA
     Route: 048
     Dates: start: 20070501, end: 20070801
  2. ZANTAC 75 [Suspect]
     Route: 048
     Dates: start: 20070801

REACTIONS (1)
  - DRUG INEFFECTIVE [None]
